FAERS Safety Report 8216445 (Version 2)
Quarter: 2012Q4

REPORT INFORMATION
  Report Type: 
  Country: US (occurrence: US)
  Receive Date: 20111031
  Receipt Date: 20121016
  Transmission Date: 20130627
  Serious: Yes (Other)
  Sender: FDA-Public Use
  Company Number: US-ROCHE-791386

PATIENT
  Age: 16 Year
  Sex: Female
  Weight: 54.48 kg

DRUGS (1)
  1. ACCUTANE [Suspect]
     Indication: ACNE
     Route: 065
     Dates: start: 20040206, end: 20040506

REACTIONS (9)
  - Colitis ulcerative [Unknown]
  - Inflammatory bowel disease [Unknown]
  - Blood cholesterol increased [Unknown]
  - Anaemia [Unknown]
  - Blood triglycerides increased [Unknown]
  - Emotional distress [Unknown]
  - Depression [Unknown]
  - Lip dry [Unknown]
  - Dry skin [Unknown]
